FAERS Safety Report 5747877-5 (Version None)
Quarter: 2008Q2

REPORT INFORMATION
  Report Type: 
  Country: None (occurrence: None)
  Receive Date: 20080523
  Receipt Date: 20080521
  Transmission Date: 20081010
  Serious: Yes (Death, Hospitalization, Other)
  Sender: FDA-Public Use
  Company Number: FR-BRISTOL-MYERS SQUIBB COMPANY-14199046

PATIENT
  Age: 50 Year
  Sex: Female

DRUGS (16)
  1. TAXOL [Suspect]
     Indication: OVARIAN EPITHELIAL CANCER
     Dosage: STARTED ON 21MAR07.
     Route: 042
     Dates: start: 20071119, end: 20071119
  2. GEMZAR [Interacting]
     Indication: OVARIAN EPITHELIAL CANCER
     Dosage: STARTED ON 21MAR07
     Route: 042
     Dates: start: 20071119, end: 20071119
  3. AVASTIN [Interacting]
     Indication: OVARIAN EPITHELIAL CANCER
     Dosage: STARTED FROM 29OCT07.
     Route: 042
     Dates: start: 20071119, end: 20071119
  4. KENZEN [Interacting]
  5. PANTOPRAZOLE SODIUM [Concomitant]
  6. PROZAC [Concomitant]
  7. LEXOMIL [Concomitant]
  8. CORTANCYL [Concomitant]
  9. WELLVONE [Concomitant]
  10. INNOHEP [Concomitant]
  11. NEORECORMON [Concomitant]
  12. AUGMENTIN '125' [Concomitant]
  13. ZOPHREN [Concomitant]
  14. METHYLPREDNISOLONE [Concomitant]
  15. POLARAMINE [Concomitant]
  16. RANITIDINE [Concomitant]

REACTIONS (2)
  - CAPILLARY LEAK SYNDROME [None]
  - DRUG INTERACTION [None]
